FAERS Safety Report 4821059-3 (Version None)
Quarter: 2005Q4

REPORT INFORMATION
  Report Type: 
  Country: None (occurrence: None)
  Receive Date: 20051104
  Receipt Date: 20051027
  Transmission Date: 20060501
  Serious: Yes (Other)
  Sender: FDA-Public Use
  Company Number: TR-ABBOTT-05P-161-0315918-00

PATIENT
  Age: 17 Year
  Sex: Male

DRUGS (4)
  1. CYCLOSPORINE [Suspect]
     Indication: PROTEINURIA
     Dosage: NOT REPORTED
  2. LISINOPRIL [Concomitant]
     Indication: FOCAL GLOMERULOSCLEROSIS
  3. PREDNISOLONE [Concomitant]
     Indication: PROTEINURIA
     Route: 048
  4. PREDNISOLONE [Concomitant]

REACTIONS (3)
  - GINGIVAL HYPERPLASIA [None]
  - HYPERTRICHOSIS [None]
  - RAYNAUD'S PHENOMENON [None]
